FAERS Safety Report 13413757 (Version 4)
Quarter: 2017Q3

REPORT INFORMATION
  Report Type: Spontaneous
  Country: US (occurrence: US)
  Receive Date: 20170407
  Receipt Date: 20170825
  Transmission Date: 20171127
  Serious: Yes (Death, Other)
  Sender: FDA-Public Use
  Company Number: US-TAIHO ONCOLOGY INC-EU-2017-00553

PATIENT
  Age: 63 Year
  Sex: Male

DRUGS (8)
  1. SILVADENE [Concomitant]
     Active Substance: SILVER SULFADIAZINE
     Dosage: NI
  2. DILAUDID [Concomitant]
     Active Substance: HYDROMORPHONE HYDROCHLORIDE
     Dosage: NI
  3. FENTANYL. [Concomitant]
     Active Substance: FENTANYL
     Dosage: NI
  4. DULCOLAX NOS [Concomitant]
     Active Substance: BISACODYL OR DOCUSATE SODIUM
     Dosage: NI
  5. MAGIC MOUTHWASH [Concomitant]
     Active Substance: DIPHENHYDRAMINE HYDROCHLORIDE\LIDOCAINE HYDROCHLORIDE\NYSTATIN
     Dosage: NI
  6. KONSYL [Concomitant]
     Active Substance: PSYLLIUM HUSK
     Dosage: NI
  7. ZOFRAN [Concomitant]
     Active Substance: ONDANSETRON HYDROCHLORIDE
     Dosage: NI
  8. LONSURF [Suspect]
     Active Substance: TIPIRACIL HYDROCHLORIDE\TRIFLURIDINE
     Indication: COLON CANCER
     Route: 048
     Dates: start: 20170210, end: 2017

REACTIONS (5)
  - Disease progression [Fatal]
  - Dehydration [Unknown]
  - Intentional dose omission [Unknown]
  - Performance status decreased [Unknown]
  - Decreased appetite [None]

NARRATIVE: CASE EVENT DATE: 2017
